FAERS Safety Report 4500501-1 (Version None)
Quarter: 2004Q3

REPORT INFORMATION
  Report Type: 
  Country: None (occurrence: None)
  Receive Date: 20040928
  Receipt Date: 20040827
  Transmission Date: 20050211
  Serious: No
  Sender: FDA-Public Use
  Company Number: 03P-163-0241455-00

PATIENT
  Age: 61 Year
  Sex: Female
  Weight: 124.7392 kg

DRUGS (14)
  1. HUMIRA [Suspect]
     Indication: PSORIATIC ARTHROPATHY
     Dosage: 40 MG, 1 IN 2 WK, SUBCUTANEOUS
     Route: 058
     Dates: start: 20030707, end: 20031101
  2. HUMIRA [Suspect]
     Indication: PSORIATIC ARTHROPATHY
     Dosage: 40 MG, 1 IN 2 WK, SUBCUTANEOUS
     Route: 058
     Dates: start: 20040108, end: 20040707
  3. CELECOXIB [Concomitant]
  4. SULFASALAZINE [Concomitant]
  5. CALCIUM [Concomitant]
  6. GLUCOSAMINE [Concomitant]
  7. AMILORIDE [Concomitant]
  8. QUINAPRIL HYDROCHLORIDE [Concomitant]
  9. FLUOXETINE HYDROCHLORIDE [Concomitant]
  10. GLYBURIDE [Concomitant]
  11. OMEPRAZOLE [Concomitant]
  12. ATENOLOL [Concomitant]
  13. GLUCOPHAGE [Concomitant]
  14. METHOCARBAMOL [Concomitant]

REACTIONS (3)
  - BACK PAIN [None]
  - GINGIVAL PAIN [None]
  - TOOTH ABSCESS [None]
